FAERS Safety Report 23928900 (Version 1)
Quarter: 2024Q2

REPORT INFORMATION
  Report Type: Spontaneous
  Country: US (occurrence: US)
  Receive Date: 20240531
  Receipt Date: 20240531
  Transmission Date: 20240716
  Serious: No
  Sender: FDA-Public Use
  Company Number: US-RADIUS HEALTH INC.-2024US000445

PATIENT
  Age: 68 Year
  Sex: Female

DRUGS (2)
  1. TYMLOS [Suspect]
     Active Substance: ABALOPARATIDE
     Indication: Senile osteoporosis
     Dosage: 80 MICROGRAM, QD
     Route: 058
     Dates: start: 20240104
  2. TYMLOS [Suspect]
     Active Substance: ABALOPARATIDE
     Indication: Pathological fracture
     Dosage: 60 MICROGRAM, QD
     Route: 058
     Dates: start: 20240104

REACTIONS (13)
  - Joint stiffness [Not Recovered/Not Resolved]
  - Myalgia [Recovering/Resolving]
  - Affect lability [Unknown]
  - Anxiety [Unknown]
  - Chest pain [Recovered/Resolved]
  - Blood pressure increased [Unknown]
  - Loss of personal independence in daily activities [Unknown]
  - Fatigue [Unknown]
  - Arthralgia [Recovering/Resolving]
  - Headache [Unknown]
  - Abdominal pain upper [Unknown]
  - Bone pain [Unknown]
  - Intentional product misuse [Unknown]

NARRATIVE: CASE EVENT DATE: 20240101
